FAERS Safety Report 5358226-9 (Version None)
Quarter: 2007Q2

REPORT INFORMATION
  Report Type: 
  Country: None (occurrence: None)
  Receive Date: 20070530
  Receipt Date: 20061117
  Transmission Date: 20071010
  Serious: Yes (Hospitalization, Other)
  Sender: FDA-Public Use
  Company Number: US200603004086

PATIENT
  Age: 42 Year
  Sex: Male
  Weight: 108.8 kg

DRUGS (4)
  1. ZYPREXA [Suspect]
     Dosage: SEE IMAGE
     Dates: end: 20040101
  2. ZYPREXA [Suspect]
     Dosage: SEE IMAGE
     Dates: start: 20020101
  3. ARIPIPRAZOLE [Concomitant]
  4. DIVALPROEX SODIUM [Concomitant]

REACTIONS (6)
  - BLOOD CHOLESTEROL ABNORMAL [None]
  - DIABETES MELLITUS [None]
  - HYPERGLYCAEMIA [None]
  - PANCREATITIS [None]
  - POLYDIPSIA [None]
  - VISION BLURRED [None]
